FAERS Safety Report 4721350-5 (Version None)
Quarter: 2005Q3

REPORT INFORMATION
  Report Type: 
  Country: None (occurrence: None)
  Receive Date: 20050721
  Receipt Date: 20040706
  Transmission Date: 20060218
  Serious: No
  Sender: FDA-Public Use
  Company Number: US-BRISTOL-MYERS SQUIBB COMPANY-12637369

PATIENT
  Age: 79 Year
  Sex: Male
  Weight: 95 kg

DRUGS (4)
  1. COUMADIN [Suspect]
     Indication: HEART VALVE REPLACEMENT
     Dosage: AT PRESENT, CONSUMER'S DOSE IS 2.5 MG 5 X WEEKLY (TWICE WEEKLY-NO COUMADIN)
     Route: 048
  2. TOPROL-XL [Concomitant]
  3. TRICOR [Concomitant]
  4. PRINIVIL [Concomitant]

REACTIONS (1)
  - DRUG LEVEL FLUCTUATING [None]
